FAERS Safety Report 6184985-1 (Version None)
Quarter: 2009Q2

REPORT INFORMATION
  Report Type: 
  Country: None (occurrence: None)
  Receive Date: 20090511
  Receipt Date: 20090226
  Transmission Date: 20091009
  Serious: No
  Sender: FDA-Public Use
  Company Number: A0771371A

PATIENT
  Age: 40 Year
  Sex: Female

DRUGS (2)
  1. COREG CR [Suspect]
     Dosage: 40MG UNKNOWN
     Route: 048
     Dates: start: 20080601
  2. LISINOPRIL [Suspect]
     Dates: end: 20080601

REACTIONS (4)
  - ARTHRALGIA [None]
  - MUSCULOSKELETAL PAIN [None]
  - NECK PAIN [None]
  - PAIN IN EXTREMITY [None]
